FAERS Safety Report 14134423 (Version 1)
Quarter: 2017Q4

REPORT INFORMATION
  Report Type: Spontaneous
  Country: US (occurrence: US)
  Receive Date: 20171026
  Receipt Date: 20171026
  Transmission Date: 20180321
  Serious: No
  Sender: FDA-Public Use
  Company Number: US-TESARO, INC.-US-2017TSO03067

PATIENT

DRUGS (1)
  1. ZEJULA [Suspect]
     Active Substance: NIRAPARIB
     Indication: PRODUCT USED FOR UNKNOWN INDICATION
     Dosage: 300 MG, UNK
     Route: 065

REACTIONS (6)
  - Eye irritation [Unknown]
  - Superficial injury of eye [Unknown]
  - Fatigue [Unknown]
  - Hypertension [Unknown]
  - Dry eye [Unknown]
  - Visual impairment [Unknown]
